FAERS Safety Report 12265277 (Version 1)
Quarter: 2016Q2

REPORT INFORMATION
  Report Type: Spontaneous
  Country: US (occurrence: US)
  Receive Date: 20160413
  Receipt Date: 20160413
  Transmission Date: 20160815
  Serious: Yes (Other)
  Sender: FDA-Public Use
  Company Number: ADR-2014-01615

PATIENT
  Age: 41 Year
  Sex: Male

DRUGS (7)
  1. BUPIVACAINE. [Suspect]
     Active Substance: BUPIVACAINE
     Dosage: 1.201MG/DAY
     Route: 037
  2. BACLOFEN. [Suspect]
     Active Substance: BACLOFEN
     Indication: MUSCLE SPASTICITY
     Route: 037
  3. BACLOFEN. [Suspect]
     Active Substance: BACLOFEN
     Indication: MUSCLE SPASTICITY
     Route: 037
  4. BACLOFEN. [Suspect]
     Active Substance: BACLOFEN
     Indication: MUSCLE SPASTICITY
     Dosage: 60.04MCG/DAY
     Route: 037
  5. LYRICA [Suspect]
     Active Substance: PREGABALIN
     Route: 048
  6. BUPIVACAINE. [Suspect]
     Active Substance: BUPIVACAINE
     Dosage: 1.201MG/DAY
     Route: 037
  7. BACLOFEN. [Suspect]
     Active Substance: BACLOFEN
     Indication: MUSCLE SPASTICITY
     Route: 037
     Dates: start: 20140826

REACTIONS (9)
  - Headache [Recovered/Resolved]
  - Sexual dysfunction [Recovered/Resolved]
  - Nausea [Recovered/Resolved]
  - Pain [Recovered/Resolved]
  - No therapeutic response [Recovered/Resolved]
  - Adverse drug reaction [Recovered/Resolved]
  - Muscle spasticity [Recovered/Resolved]
  - Dizziness [Recovered/Resolved]
  - Syncope [Recovered/Resolved]

NARRATIVE: CASE EVENT DATE: 2014
